FAERS Safety Report 8615149 (Version 2)
Quarter: 2014Q1

REPORT INFORMATION
  Report Type: Spontaneous
  Country: US (occurrence: None)
  Receive Date: 20120323
  Receipt Date: 20130305
  Transmission Date: 20141002
  Serious: Yes (Other)
  Sender: FDA-Public Use
  Company Number: 163-21880-11121847

PATIENT
  Age: 69 Year
  Sex: Female

DRUGS (5)
  1. REVLIMID [Suspect]
     Indication: MYELODYSPLASTIC SYNDROME
     Dosage: 10 MG, X21 DAY, PO
     Route: 048
     Dates: start: 20111129, end: 20111130
  2. REVLIMID [Suspect]
     Indication: REFRACTORY CYTOPENIA WITH UNILINEAGE DYSPLASIA
     Dosage: 10 MG, X21 DAY, PO
     Route: 048
     Dates: start: 20111129, end: 20111130
  3. DECADRON (DEXAMETHASONE) [Concomitant]
  4. BENADRYL [Concomitant]
  5. MEDROL DOSEPAK [Concomitant]

REACTIONS (5)
  - Angioedema [None]
  - Swelling face [None]
  - Eye swelling [None]
  - Pruritus [None]
  - Haemoglobin decreased [None]
